FAERS Safety Report 13921557 (Version 1)
Quarter: 2017Q3

REPORT INFORMATION
  Report Type: Spontaneous
  Country: US (occurrence: None)
  Receive Date: 20170830
  Receipt Date: 20170830
  Transmission Date: 20171127
  Serious: Yes (Disabling, Other)
  Sender: FDA-Public Use
  Company Number: None

PATIENT
  Age: 53 Year
  Sex: Female
  Weight: 49.44 kg

DRUGS (5)
  1. CYPROHEPTADINE. [Suspect]
     Active Substance: CYPROHEPTADINE
     Indication: WEIGHT INCREASED
     Route: 048
     Dates: start: 20110605, end: 20170501
  2. TYLENOL [Concomitant]
     Active Substance: ACETAMINOPHEN
  3. ONE A DAY VITAMINS [Concomitant]
  4. CYPROHEPTADINE. [Suspect]
     Active Substance: CYPROHEPTADINE
     Indication: APPETITE DISORDER
     Route: 048
     Dates: start: 20110605, end: 20170501
  5. IBUPROFAN [Concomitant]

REACTIONS (2)
  - Abdominal pain [None]
  - Weight decreased [None]

NARRATIVE: CASE EVENT DATE: 20170501
